FAERS Safety Report 7582127-9 (Version None)
Quarter: 2011Q2

REPORT INFORMATION
  Report Type: 
  Country: None (occurrence: None)
  Receive Date: 20110630
  Receipt Date: 20110622
  Transmission Date: 20111010
  Serious: No
  Sender: FDA-Public Use
  Company Number: US-BIOGENIDEC-2011BI023038

PATIENT
  Sex: Male

DRUGS (1)
  1. TYSABRI [Suspect]
     Indication: MULTIPLE SCLEROSIS
     Route: 042

REACTIONS (5)
  - TONSILLAR HYPERTROPHY [None]
  - SINUSITIS [None]
  - EAR INFECTION [None]
  - MALAISE [None]
  - DECREASED IMMUNE RESPONSIVENESS [None]
